FAERS Safety Report 21297621 (Version 2)
Quarter: 2022Q3

REPORT INFORMATION
  Report Type: Spontaneous
  Country: US (occurrence: US)
  Receive Date: 20220906
  Receipt Date: 20220906
  Transmission Date: 20221027
  Serious: Yes (Hospitalization, Other)
  Sender: FDA-Public Use
  Company Number: US-PFIZER INC-202201117791

PATIENT
  Age: 68 Year
  Sex: Male
  Weight: 106.59 kg

DRUGS (1)
  1. XELJANZ [Suspect]
     Active Substance: TOFACITINIB CITRATE
     Indication: Rheumatoid arthritis
     Dosage: 11 MG, 1X/DAY
     Dates: start: 2018

REACTIONS (8)
  - Atrial fibrillation [Unknown]
  - Dyspnoea [Unknown]
  - Heart rate increased [Unknown]
  - Cardiac failure [Unknown]
  - Heart rate irregular [Unknown]
  - Back pain [Unknown]
  - Hyperhidrosis [Unknown]
  - Exercise tolerance decreased [Unknown]

NARRATIVE: CASE EVENT DATE: 20220823
